FAERS Safety Report 16402640 (Version 1)
Quarter: 2019Q2

REPORT INFORMATION
  Report Type: Spontaneous
  Country: BR (occurrence: BR)
  Receive Date: 20190607
  Receipt Date: 20190607
  Transmission Date: 20190711
  Serious: Yes (Other)
  Sender: FDA-Public Use
  Company Number: BR-ACTELION-A-CH2019-191198

PATIENT
  Age: 11 Year
  Sex: Male
  Weight: 31 kg

DRUGS (2)
  1. ZAVESCA [Suspect]
     Active Substance: MIGLUSTAT
     Indication: NIEMANN-PICK DISEASE
     Dosage: 2 DF, QD
     Route: 048
     Dates: start: 20180618, end: 201806
  2. ZAVESCA [Suspect]
     Active Substance: MIGLUSTAT
     Dosage: 2 DF, QD, BY THE MORNING AND AT NIGHT
     Route: 048
     Dates: start: 201806, end: 201812

REACTIONS (7)
  - Condition aggravated [Not Recovered/Not Resolved]
  - Disturbance in attention [Not Recovered/Not Resolved]
  - Memory impairment [Not Recovered/Not Resolved]
  - Learning disability [Not Recovered/Not Resolved]
  - Niemann-Pick disease [Not Recovered/Not Resolved]
  - Vision blurred [Not Recovered/Not Resolved]
  - Reading disorder [Not Recovered/Not Resolved]

NARRATIVE: CASE EVENT DATE: 201902
